FAERS Safety Report 4647305-7 (Version None)
Quarter: 2005Q2

REPORT INFORMATION
  Report Type: 
  Country: None (occurrence: None)
  Receive Date: 20050426
  Receipt Date: 20050414
  Transmission Date: 20051028
  Serious: Yes (Life-Threatening, Hospitalization)
  Sender: FDA-Public Use
  Company Number: CERZ-10850

PATIENT
  Age: 27 Month
  Sex: Male
  Weight: 9 kg

DRUGS (11)
  1. CEREZYME [Suspect]
     Indication: GAUCHER'S DISEASE
     Dosage: 600 UNITS Q2WKS IV
     Route: 042
     Dates: start: 20030715
  2. VALPROATE SODIUM [Concomitant]
  3. CLARITHROMYCIN [Concomitant]
  4. FUROSEMIDE [Concomitant]
  5. SPIRONOLACTONE [Concomitant]
  6. CYPROHEPTADINE HYDROCHLORIDE [Concomitant]
  7. PHENOBARBITAL [Concomitant]
  8. THEOPHYLLINE [Concomitant]
  9. TPN [Concomitant]
  10. PIRACETAM [Concomitant]
  11. DANTROLENE SODIUM [Concomitant]

REACTIONS (5)
  - BODY TEMPERATURE INCREASED [None]
  - CYANOSIS [None]
  - DYSPNOEA [None]
  - HYPERTONIA [None]
  - INFUSION RELATED REACTION [None]
